FAERS Safety Report 24710970 (Version 1)
Quarter: 2024Q4

REPORT INFORMATION
  Report Type: Spontaneous
  Country: US (occurrence: US)
  Receive Date: 20241209
  Receipt Date: 20241209
  Transmission Date: 20250115
  Serious: No
  Sender: AMGEN
  Company Number: US-AMGEN-USASP2024239522

PATIENT
  Age: 56 Year
  Sex: Male

DRUGS (4)
  1. OTEZLA [Suspect]
     Active Substance: APREMILAST
     Indication: Psoriasis
     Dosage: 30 MILLIGRAM, BID
     Route: 048
     Dates: start: 20240326
  2. BETAMETH DIPROPIONATE [Concomitant]
  3. CLOBETASOL [Concomitant]
     Active Substance: CLOBETASOL
     Dosage: LOTION
  4. ZORYVE [Concomitant]
     Active Substance: ROFLUMILAST

REACTIONS (2)
  - Therapy non-responder [Unknown]
  - Product dose omission issue [Unknown]

NARRATIVE: CASE EVENT DATE: 20240101
